FAERS Safety Report 22285381 (Version 2)
Quarter: 2023Q2

REPORT INFORMATION
  Report Type: Spontaneous
  Country: RO (occurrence: RO)
  Receive Date: 20230504
  Receipt Date: 20230515
  Transmission Date: 20230721
  Serious: Yes (Other)
  Sender: FDA-Public Use
  Company Number: RO-EMA-DD-20230421-225467-134408

PATIENT
  Age: 66 Year
  Sex: Male

DRUGS (7)
  1. CAPECITABINE [Suspect]
     Active Substance: CAPECITABINE
     Indication: Squamous cell carcinoma of head and neck
     Dosage: UNK, QCY (2 CYCLES)
  2. DOCETAXEL [Suspect]
     Active Substance: DOCETAXEL
     Indication: Squamous cell carcinoma of head and neck
     Dosage: TWO CHEMOTHERAPY CYCLES
  3. GEMCITABINE [Suspect]
     Active Substance: GEMCITABINE
     Indication: Squamous cell carcinoma of head and neck
     Dosage: UNK UNK,
     Dates: start: 2018, end: 201811
  4. CETUXIMAB [Suspect]
     Active Substance: CETUXIMAB
     Indication: Squamous cell carcinoma of head and neck
     Dosage: UNK UNK, QCY
     Dates: start: 201711, end: 201802
  5. CETUXIMAB [Suspect]
     Active Substance: CETUXIMAB
     Dosage: UNK, CYCLIC
     Dates: start: 201701
  6. FLUOROURACIL [Suspect]
     Active Substance: FLUOROURACIL
     Indication: Squamous cell carcinoma of head and neck
     Dosage: UNK UNK, QCY
  7. CARBOPLATIN [Suspect]
     Active Substance: CARBOPLATIN
     Indication: Squamous cell carcinoma of head and neck
     Dosage: UNK, CYCLIC (TWO CHEMOTHERAPY CYCLES), 2ND LINECHEMOTHERAPY IN THE GEMCITABINE-CARBOPLATIN POLYCHEMO
     Dates: start: 2018, end: 201811

REACTIONS (7)
  - Odynophagia [Unknown]
  - Leukopenia [Unknown]
  - Fatigue [Unknown]
  - Disease progression [Unknown]
  - Epistaxis [Unknown]
  - Asthenia [Unknown]
  - Rash [Unknown]

NARRATIVE: CASE EVENT DATE: 20171101
